FAERS Safety Report 10208479 (Version 1)
Quarter: 2014Q2

REPORT INFORMATION
  Report Type: Report from Study
  Country: MX (occurrence: MX)
  Receive Date: 20140530
  Receipt Date: 20140530
  Transmission Date: 20141212
  Serious: Yes (Life-Threatening, Other)
  Sender: FDA-Public Use
  Company Number: PHHY2014MX066614

PATIENT
  Age: 85 Year
  Sex: Female

DRUGS (3)
  1. ACLASTA [Suspect]
     Indication: OSTEOPOROSIS
     Dosage: 5MG/100ML/ ANNUALLY
     Route: 042
  2. ATIVAN [Concomitant]
     Indication: SLEEP DISORDER
     Dosage: 1 DF, QD (AT NIGHT)
     Dates: start: 1980
  3. LOSARTAN [Concomitant]
     Indication: CARDIAC DISORDER
     Dosage: UNK UKN, UNK

REACTIONS (10)
  - Feeling abnormal [Not Recovered/Not Resolved]
  - Forearm fracture [Not Recovered/Not Resolved]
  - Clavicle fracture [Not Recovered/Not Resolved]
  - Helicobacter infection [Not Recovered/Not Resolved]
  - Fall [Recovered/Resolved]
  - Mobility decreased [Not Recovered/Not Resolved]
  - Pain in extremity [Not Recovered/Not Resolved]
  - Pain [Not Recovered/Not Resolved]
  - Osteoporosis [Not Recovered/Not Resolved]
  - Disease progression [Not Recovered/Not Resolved]
